FAERS Safety Report 4613342-1 (Version None)
Quarter: 2005Q1

REPORT INFORMATION
  Report Type: 
  Country: None (occurrence: None)
  Receive Date: 20050316
  Receipt Date: 20050304
  Transmission Date: 20050727
  Serious: Yes (Other)
  Sender: FDA-Public Use
  Company Number: 2005042551

PATIENT
  Age: 71 Year
  Sex: Female

DRUGS (2)
  1. UNASYN [Suspect]
     Indication: PNEUMONIA
     Dosage: 3 GRAM (3 GRAM, 1 IN 1 D), INTRAVENOUS
     Route: 042
     Dates: start: 20050225, end: 20050225
  2. CEFOTAXIME SODIUM [Concomitant]

REACTIONS (3)
  - BLOOD PRESSURE INCREASED [None]
  - EXANTHEM [None]
  - SHOCK [None]
